FAERS Safety Report 25062461 (Version 1)
Quarter: 2025Q1

REPORT INFORMATION
  Report Type: Spontaneous
  Country: US (occurrence: US)
  Receive Date: 20250311
  Receipt Date: 20250311
  Transmission Date: 20250408
  Serious: Yes (Other)
  Sender: COOPERSURGICAL
  Company Number: US-COOPERSURGICAL, INC.-2025CPS001699

PATIENT
  Age: 38 Year
  Sex: Female
  Weight: 77.098 kg

DRUGS (2)
  1. PARAGARD T 380A [Suspect]
     Active Substance: COPPER
     Indication: Contraception
     Route: 015
     Dates: start: 20130901
  2. RIVAROXABAN [Concomitant]
     Active Substance: RIVAROXABAN
     Dates: start: 201301

REACTIONS (7)
  - Uterine leiomyoma [Not Recovered/Not Resolved]
  - Injury [Recovered/Resolved]
  - Device breakage [Recovered/Resolved]
  - Foreign body in reproductive tract [Recovered/Resolved]
  - Complication of device removal [Recovered/Resolved]
  - Depression [Not Recovered/Not Resolved]
  - Abnormal uterine bleeding [Not Recovered/Not Resolved]

NARRATIVE: CASE EVENT DATE: 20181212
